FAERS Safety Report 5534327-7 (Version None)
Quarter: 2007Q4

REPORT INFORMATION
  Report Type: 
  Country: None (occurrence: None)
  Receive Date: 20071130
  Receipt Date: 20071115
  Transmission Date: 20080405
  Serious: Yes (Other)
  Sender: FDA-Public Use
  Company Number: 100#03#2007-04803

PATIENT
  Age: 60 Year
  Sex: Male

DRUGS (5)
  1. CIPROFLOXACIN [Suspect]
     Indication: URINARY TRACT INFECTION
     Dosage: 200 MG ORAL
     Route: 048
     Dates: start: 20070921, end: 20070928
  2. ATENOLOL [Concomitant]
  3. DONEPEZIL HCL [Concomitant]
  4. MEMANTINE HCL [Concomitant]
  5. SULPIRIDE [Concomitant]

REACTIONS (1)
  - PEMPHIGOID [None]
